FAERS Safety Report 17527526 (Version 2)
Quarter: 2020Q2

REPORT INFORMATION
  Report Type: Spontaneous
  Country: US (occurrence: US)
  Receive Date: 20200311
  Receipt Date: 20200414
  Transmission Date: 20200713
  Serious: No
  Sender: FDA-Public Use
  Company Number: US-JNJFOC-20200312054

PATIENT
  Sex: Male

DRUGS (10)
  1. HYDROCHLOROTHIAZID [Concomitant]
     Active Substance: HYDROCHLOROTHIAZIDE
  2. ZYTIGA [Suspect]
     Active Substance: ABIRATERONE ACETATE
     Dosage: MONDAY, WEDNESDAY, FRIDAY.
     Route: 048
  3. CALCIUM W/COLECALCIFEROL [Concomitant]
     Active Substance: CALCIUM\CHOLECALCIFEROL
  4. ASCORBIC ACID. [Concomitant]
     Active Substance: ASCORBIC ACID
  5. DELTASONE [Concomitant]
     Active Substance: PREDNISONE
  6. GLIPIZIDE. [Concomitant]
     Active Substance: GLIPIZIDE
  7. TAMSULOSIN [Concomitant]
     Active Substance: TAMSULOSIN
  8. POTASSIUM CHLORIDE. [Concomitant]
     Active Substance: POTASSIUM CHLORIDE
  9. ZYTIGA [Suspect]
     Active Substance: ABIRATERONE ACETATE
     Indication: PRODUCT USED FOR UNKNOWN INDICATION
     Dosage: SUNDAY, TUESDAY, THURSDAY, SATURDAY
     Route: 048
  10. FLORAJEN [Concomitant]
     Active Substance: PROBIOTICS NOS

REACTIONS (4)
  - Product use issue [Unknown]
  - Off label use [Unknown]
  - Prostatic disorder [Unknown]
  - Urinary tract infection [Recovering/Resolving]
